FAERS Safety Report 24706556 (Version 2)
Quarter: 2024Q4

REPORT INFORMATION
  Report Type: Report from Study
  Country: US (occurrence: US)
  Receive Date: 20241206
  Receipt Date: 20241213
  Transmission Date: 20250115
  Serious: Yes (Other)
  Sender: JOHNSON AND JOHNSON
  Company Number: US-JNJFOC-20241215327

PATIENT
  Age: 70 Year
  Sex: Female

DRUGS (4)
  1. SPRAVATO [Suspect]
     Active Substance: ESKETAMINE
     Indication: Depression
     Dosage: ?28 MG, 5 TOTAL DOSES?
     Route: 045
     Dates: start: 20231208, end: 20240105
  2. SPRAVATO [Suspect]
     Active Substance: ESKETAMINE
     Dosage: ?56 MG,6 TOTAL DOSES?
     Route: 045
     Dates: start: 20240112, end: 20240315
  3. SPRAVATO [Suspect]
     Active Substance: ESKETAMINE
     Dosage: ?56 MG, 3 TOTAL DOSES?
     Route: 045
     Dates: start: 20231024, end: 20231201
  4. SPRAVATO [Suspect]
     Active Substance: ESKETAMINE
     Dosage: ?56 MG,1 TOTAL DOSES?
     Route: 045
     Dates: start: 20240329, end: 20240329

REACTIONS (1)
  - Dizziness [Not Recovered/Not Resolved]

NARRATIVE: CASE EVENT DATE: 20240329
